FAERS Safety Report 10207946 (Version 1)
Quarter: 2014Q2

REPORT INFORMATION
  Report Type: Spontaneous
  Country: US (occurrence: US)
  Receive Date: 20140530
  Receipt Date: 20140530
  Transmission Date: 20141212
  Serious: Yes (Other)
  Sender: FDA-Public Use
  Company Number: US-TEVA-485199USA

PATIENT
  Age: 40 Year
  Sex: Female
  Weight: 56.75 kg

DRUGS (3)
  1. PARAGARD 380A [Suspect]
     Indication: CONTRACEPTION
     Route: 015
     Dates: start: 20140317, end: 20140422
  2. PROBIOTICS [Concomitant]
     Indication: NUTRITIONAL SUPPLEMENTATION
  3. PROTONIX [Concomitant]
     Indication: BARRETT^S OESOPHAGUS

REACTIONS (6)
  - Pelvic inflammatory disease [Unknown]
  - Muscle spasms [Not Recovered/Not Resolved]
  - Abdominal distension [Recovered/Resolved]
  - Muscle spasms [Recovered/Resolved]
  - Vaginal haemorrhage [Recovered/Resolved]
  - Dysmenorrhoea [Not Recovered/Not Resolved]
